FAERS Safety Report 23294087 (Version 2)
Quarter: 2024Q2

REPORT INFORMATION
  Report Type: Report from Study
  Country: US (occurrence: US)
  Receive Date: 20231213
  Receipt Date: 20240417
  Transmission Date: 20240716
  Serious: Yes (Hospitalization)
  Sender: FDA-Public Use
  Company Number: US-BIOGEN-2023BI01200210

PATIENT
  Sex: Female

DRUGS (3)
  1. VUMERITY [Suspect]
     Active Substance: DIROXIMEL FUMARATE
     Indication: Multiple sclerosis
     Dosage: 1-2 MONTHS AGO, FOR 7 DAYS?AROUND SEP/OCT 2023
     Route: 050
     Dates: start: 2023
  2. VUMERITY [Suspect]
     Active Substance: DIROXIMEL FUMARATE
     Dosage: 2-231 MG CAPSULES
     Route: 050
  3. PREDNISONE [Concomitant]
     Active Substance: PREDNISONE
     Indication: Back pain
     Route: 050

REACTIONS (5)
  - Sciatica [Unknown]
  - Cartilage atrophy [Unknown]
  - Abdominal discomfort [Unknown]
  - Incision site pruritus [Unknown]
  - Product dose omission in error [Unknown]
